FAERS Safety Report 7350742-3 (Version None)
Quarter: 2011Q1

REPORT INFORMATION
  Report Type: 
  Country: None (occurrence: None)
  Receive Date: 20110314
  Receipt Date: 20110307
  Transmission Date: 20110831
  Serious: Yes (Other)
  Sender: FDA-Public Use
  Company Number: US-PFIZER INC-2011049575

PATIENT
  Age: 54 Year
  Sex: Female

DRUGS (2)
  1. SUTENT [Suspect]
     Indication: NEOPLASM MALIGNANT
     Dosage: UNK
  2. GLEEVEC [Suspect]
     Dosage: UNK

REACTIONS (3)
  - DISEASE PROGRESSION [None]
  - NEOPLASM MALIGNANT [None]
  - ARTHROPATHY [None]
